FAERS Safety Report 10519957 (Version 1)
Quarter: 2014Q4

REPORT INFORMATION
  Report Type: Spontaneous
  Country: US (occurrence: US)
  Receive Date: 20141015
  Receipt Date: 20141015
  Transmission Date: 20150528
  Serious: Yes (Hospitalization)
  Sender: FDA-Public Use
  Company Number: US-ROXANE LABORATORIES, INC.-2014-BI-06235GD

PATIENT
  Age: 43 Year
  Sex: Male

DRUGS (5)
  1. PREDNISONE. [Suspect]
     Active Substance: PREDNISONE
     Indication: CROHN^S DISEASE
     Dosage: TITRATED UP TO 40 MG/D OVER 3 MONTHS
     Route: 065
  2. AZATHIOPRINE. [Suspect]
     Active Substance: AZATHIOPRINE
     Indication: CROHN^S DISEASE
     Dosage: INCREASED TO 400 MG/D
     Route: 065
  3. REMICADE [Suspect]
     Active Substance: INFLIXIMAB
     Dosage: 10 MG/KG EVERY 8 WEEKS
     Route: 065
  4. REMICADE [Suspect]
     Active Substance: INFLIXIMAB
     Indication: CROHN^S DISEASE
     Dosage: 10 MG/KG EVERY 6 WEEKS
     Route: 065
  5. AZATHIOPRINE. [Suspect]
     Active Substance: AZATHIOPRINE
     Dosage: 10 MG/KG EVERY 8 WEEKS
     Route: 065

REACTIONS (6)
  - Dysphonia [Unknown]
  - Dehydration [Unknown]
  - Epiglottitis [Unknown]
  - Odynophagia [Unknown]
  - Pyrexia [Unknown]
  - Histoplasmosis disseminated [Unknown]
